FAERS Safety Report 5443562-8 (Version None)
Quarter: 2007Q3

REPORT INFORMATION
  Report Type: 
  Country: None (occurrence: None)
  Receive Date: 20070905
  Receipt Date: 20070824
  Transmission Date: 20080115
  Serious: Yes (Other)
  Sender: FDA-Public Use
  Company Number: US-ROCHE-493951

PATIENT
  Age: 72 Year
  Sex: Female
  Weight: 64 kg

DRUGS (9)
  1. PEG-INTERFERON A-2A (RO 25-8310) [Suspect]
     Route: 058
     Dates: start: 20070122, end: 20070709
  2. RIBAVIRIN [Suspect]
     Route: 065
     Dates: start: 20070122, end: 20070709
  3. PROCRIT [Suspect]
     Dosage: THE PATIENT RESUMED WEEKLY PROCRIT INJECTIONS.
     Route: 065
     Dates: start: 20070301
  4. HYDROCHLOROTHIAZIDE [Concomitant]
  5. ALLEGRA [Concomitant]
  6. OMEPRAZOLE [Concomitant]
  7. EVISTA [Concomitant]
  8. COZAAR [Concomitant]
  9. ATENOLOL [Concomitant]
     Route: 048

REACTIONS (19)
  - ALOPECIA [None]
  - ANAEMIA [None]
  - COUGH [None]
  - DECREASED APPETITE [None]
  - DRY MOUTH [None]
  - DRY SKIN [None]
  - DYSPNOEA EXERTIONAL [None]
  - FACIAL BONES FRACTURE [None]
  - FALL [None]
  - FATIGUE [None]
  - HYPERAESTHESIA [None]
  - INSOMNIA [None]
  - MIGRAINE WITH AURA [None]
  - MYALGIA [None]
  - PAIN [None]
  - PRURITUS [None]
  - RASH PRURITIC [None]
  - RHINORRHOEA [None]
  - STOMATITIS [None]
